FAERS Safety Report 18390169 (Version 1)
Quarter: 2020Q4

REPORT INFORMATION
  Report Type: Spontaneous
  Country: US (occurrence: US)
  Receive Date: 20201016
  Receipt Date: 20201016
  Transmission Date: 20210114
  Serious: No
  Sender: FDA-Public Use
  Company Number: US-SA-2020SA281594

PATIENT

DRUGS (1)
  1. DUPILUMAB [Suspect]
     Active Substance: DUPILUMAB
     Dosage: UNK
     Dates: start: 20200811

REACTIONS (5)
  - Skin swelling [Unknown]
  - Rash [Unknown]
  - Skin lesion [Unknown]
  - Solar lentigo [Unknown]
  - Pruritus [Unknown]

NARRATIVE: CASE EVENT DATE: 2020
